FAERS Safety Report 6691451-3 (Version None)
Quarter: 2010Q2

REPORT INFORMATION
  Report Type: 
  Country: None (occurrence: None)
  Receive Date: 20100416
  Receipt Date: 20100412
  Transmission Date: 20101027
  Serious: Yes (Hospitalization)
  Sender: FDA-Public Use
  Company Number: 2010SP010253

PATIENT
  Age: 29 Year
  Sex: Female
  Weight: 56 kg

DRUGS (3)
  1. MERCILON CONTI (DESOGESTREL/ETHINYLESTRADIOL /00570801/) [Suspect]
     Indication: CYST
     Dosage: PO
     Route: 048
     Dates: start: 20090801
  2. MERCILON CONTI (DESOGESTREL/ETHINYLESTRADIOL /00570801/) [Suspect]
     Indication: MENSTRUAL CYCLE MANAGEMENT
     Dosage: PO
     Route: 048
     Dates: start: 20090801
  3. DIANE 35 [Concomitant]

REACTIONS (5)
  - DRUG INTERACTION [None]
  - METRORRHAGIA [None]
  - MIGRAINE [None]
  - OFF LABEL USE [None]
  - PHARYNGITIS [None]
